FAERS Safety Report 4713862-5 (Version None)
Quarter: 2005Q3

REPORT INFORMATION
  Report Type: 
  Country: None (occurrence: None)
  Receive Date: 20050712
  Receipt Date: 20050629
  Transmission Date: 20060218
  Serious: Yes (Other)
  Sender: FDA-Public Use
  Company Number: 2005094662

PATIENT
  Sex: Male
  Weight: 80.7403 kg

DRUGS (4)
  1. VIAGRA [Suspect]
     Indication: ERECTILE DYSFUNCTION
     Dosage: 100 MG (100 MG, AS NECESSARY), 0RAL
     Route: 048
     Dates: start: 20000101
  2. LOTREL [Concomitant]
  3. BETA BLOCKING AGENTS (BETA BLOCKING AGENTS) [Concomitant]
  4. LIPITOR [Concomitant]

REACTIONS (8)
  - ABNORMAL SENSATION IN EYE [None]
  - ASTHENIA [None]
  - CORONARY ARTERY OCCLUSION [None]
  - EYE SWELLING [None]
  - EYELID OEDEMA [None]
  - EYELID PTOSIS [None]
  - SENSATION OF HEAVINESS [None]
  - SOMNOLENCE [None]
